FAERS Safety Report 9198072 (Version 1)
Quarter: 2013Q1

REPORT INFORMATION
  Report Type: Spontaneous
  Country: GB (occurrence: GB)
  Receive Date: 20130329
  Receipt Date: 20130329
  Transmission Date: 20140127
  Serious: Yes (Other)
  Sender: FDA-Public Use
  Company Number: PHHY2013GB028242

PATIENT
  Sex: Female

DRUGS (1)
  1. GABAPENTIN [Suspect]

REACTIONS (1)
  - Cognitive disorder [Unknown]
